FAERS Safety Report 15344397 (Version 1)
Quarter: 2018Q3

REPORT INFORMATION
  Report Type: Spontaneous
  Country: US (occurrence: US)
  Receive Date: 20180903
  Receipt Date: 20180903
  Transmission Date: 20181010
  Serious: Yes (Hospitalization)
  Sender: FDA-Public Use
  Company Number: US-PFIZER INC-2018350510

PATIENT
  Sex: Male

DRUGS (15)
  1. ATORVASTATIN CALCIUM. [Suspect]
     Active Substance: ATORVASTATIN CALCIUM
  2. ZECLAR [Suspect]
     Active Substance: CLARITHROMYCIN
  3. FUROSEMIDE. [Suspect]
     Active Substance: FUROSEMIDE
  4. QUINAPRIL. [Suspect]
     Active Substance: QUINAPRIL
  5. GLIPIZIDE. [Suspect]
     Active Substance: GLIPIZIDE
  6. CLOPIDOGREL [Suspect]
     Active Substance: CLOPIDOGREL BISULFATE
  7. SIMVASTATIN. [Suspect]
     Active Substance: SIMVASTATIN
  8. OMEPRAZOLE. [Suspect]
     Active Substance: OMEPRAZOLE
  9. NOVOLIN [Suspect]
     Active Substance: INSULIN HUMAN
  10. CARVEDILOL. [Suspect]
     Active Substance: CARVEDILOL
  11. ROPINIROL [Suspect]
     Active Substance: ROPINIROLE
  12. XOPENEX [Suspect]
     Active Substance: LEVALBUTEROL HYDROCHLORIDE
  13. AMLODIPINE BESILATE [Suspect]
     Active Substance: AMLODIPINE BESYLATE
  14. VITAMIN D3 [Suspect]
     Active Substance: CHOLECALCIFEROL
  15. NOVOLIN R [Suspect]
     Active Substance: INSULIN HUMAN

REACTIONS (1)
  - Heart rate increased [Unknown]

NARRATIVE: CASE EVENT DATE: 20180822
